FAERS Safety Report 9970577 (Version 1)
Quarter: 2014Q1

REPORT INFORMATION
  Report Type: Spontaneous
  Country: US (occurrence: US)
  Receive Date: 20140306
  Receipt Date: 20140306
  Transmission Date: 20141002
  Serious: No
  Sender: FDA-Public Use
  Company Number: US-ABBVIE-13P-163-1151821-00

PATIENT
  Sex: Male
  Weight: 68.1 kg

DRUGS (4)
  1. HUMIRA [Suspect]
     Indication: PSORIASIS
     Dosage: 2
     Route: 058
     Dates: start: 2003
  2. METFORMIN [Concomitant]
     Indication: DIABETES MELLITUS
     Route: 048
     Dates: start: 2003
  3. GLIPIZIDE [Concomitant]
     Indication: DIABETES MELLITUS
     Route: 058
     Dates: start: 2003
  4. VICTOZA [Concomitant]
     Indication: DIABETES MELLITUS
     Route: 058
     Dates: start: 201307

REACTIONS (5)
  - Hypoaesthesia [Not Recovered/Not Resolved]
  - Hypoaesthesia [Not Recovered/Not Resolved]
  - Paraesthesia [Not Recovered/Not Resolved]
  - Oedema peripheral [Not Recovered/Not Resolved]
  - Hypertension [Not Recovered/Not Resolved]
